FAERS Safety Report 20372231 (Version 1)
Quarter: 2022Q1

REPORT INFORMATION
  Report Type: Report from Study
  Country: RO (occurrence: RO)
  Receive Date: 20220124
  Receipt Date: 20220124
  Transmission Date: 20220423
  Serious: Yes (Hospitalization)
  Sender: FDA-Public Use
  Company Number: RO-ABBVIE-22K-135-4246715-00

PATIENT
  Age: 62 Year
  Sex: Female

DRUGS (4)
  1. DASABUVIR [Suspect]
     Active Substance: DASABUVIR
     Indication: Chronic hepatitis C
     Route: 048
     Dates: start: 20210705, end: 20210926
  2. OMBITASVIR\PARITAPREVIR\RITONAVIR [Suspect]
     Active Substance: OMBITASVIR\PARITAPREVIR\RITONAVIR
     Indication: Chronic hepatitis C
     Route: 048
     Dates: start: 20210705, end: 20210926
  3. Colafast [Concomitant]
     Indication: Arthritis
     Dosage: PRIOR ABBVIE THERAPY
     Route: 048
  4. TANDESAR [Concomitant]
     Indication: Hypertension
     Dosage: PRIOR ABBVIE THERAPY
     Route: 048

REACTIONS (2)
  - Varicose vein [Recovering/Resolving]
  - Vein disorder [Recovered/Resolved]
